FAERS Safety Report 13094218 (Version 4)
Quarter: 2017Q1

REPORT INFORMATION
  Report Type: Spontaneous
  Country: US (occurrence: US)
  Receive Date: 20170106
  Receipt Date: 20170320
  Transmission Date: 20170428
  Serious: Yes (Congenital Anomaly, Other)
  Sender: FDA-Public Use
  Company Number: US-PFIZER INC-2017003126

PATIENT
  Sex: Male
  Weight: 4.28 kg

DRUGS (1)
  1. METHOTREXATE SODIUM. [Suspect]
     Active Substance: METHOTREXATE SODIUM
     Indication: ECTOPIC PREGNANCY TERMINATION
     Dosage: 75 UG, UNK (50 UG/M^2)
     Route: 064

REACTIONS (7)
  - Craniosynostosis [Unknown]
  - Arnold-Chiari malformation [Unknown]
  - Foetal exposure during pregnancy [Unknown]
  - Product use issue [Unknown]
  - Meningomyelocele [Unknown]
  - Talipes [Unknown]
  - Foetal methotrexate syndrome [Unknown]
